FAERS Safety Report 5128262-6 (Version None)
Quarter: 2006Q4

REPORT INFORMATION
  Report Type: 
  Country: None (occurrence: None)
  Receive Date: 20061011
  Receipt Date: 20060925
  Transmission Date: 20070319
  Serious: Yes (Hospitalization)
  Sender: FDA-Public Use
  Company Number: S06-FRA-04111-02

PATIENT
  Age: 1 Decade
  Sex: Female
  Weight: 2.52 kg

DRUGS (2)
  1. SEROPRAM (CITALOPRAM HYDROBROMIDE) [Suspect]
     Dosage: 20 MG  BID TRANSPLACENTAL
     Route: 064
     Dates: end: 20060712
  2. EQUANIL [Suspect]
     Dosage: 400 MG TRANSPLACENTAL
     Route: 064
     Dates: end: 20060712

REACTIONS (7)
  - APGAR SCORE LOW [None]
  - CONVULSION NEONATAL [None]
  - DRUG EXPOSURE DURING PREGNANCY [None]
  - DRUG WITHDRAWAL SYNDROME NEONATAL [None]
  - GROWTH RETARDATION [None]
  - HYPERTONIA NEONATAL [None]
  - NEONATAL RESPIRATORY DISTRESS SYNDROME [None]
